FAERS Safety Report 8176413-1 (Version None)
Quarter: 2012Q1

REPORT INFORMATION
  Report Type: 
  Country: None (occurrence: None)
  Receive Date: 20120301
  Receipt Date: 20120222
  Transmission Date: 20120608
  Serious: Yes (Other)
  Sender: FDA-Public Use
  Company Number: JP-ASTELLAS-2012JP001493

PATIENT
  Sex: Female

DRUGS (1)
  1. PROGRAF [Suspect]
     Dosage: UNK
     Route: 048

REACTIONS (3)
  - PAIN IN EXTREMITY [None]
  - GRAFT VERSUS HOST DISEASE [None]
  - DRUG INEFFECTIVE [None]
